FAERS Safety Report 19702036 (Version 4)
Quarter: 2021Q3

REPORT INFORMATION
  Report Type: Report from Study
  Country: US (occurrence: US)
  Receive Date: 20210814
  Receipt Date: 20210902
  Transmission Date: 20211014
  Serious: No
  Sender: FDA-Public Use
  Company Number: NVSC2021US180059

PATIENT
  Age: 79 Year
  Sex: Female

DRUGS (2)
  1. ENTRESTO [Suspect]
     Active Substance: SACUBITRIL\VALSARTAN
     Indication: CARDIAC FAILURE
  2. ENTRESTO [Suspect]
     Active Substance: SACUBITRIL\VALSARTAN
     Indication: CARDIAC FAILURE
     Dosage: 50 MG 24/26 MG), BID
     Route: 048
     Dates: start: 20210729

REACTIONS (7)
  - Weight decreased [Unknown]
  - Cardiac valve disease [Unknown]
  - Heart rate decreased [Unknown]
  - Nausea [Unknown]
  - Feeling abnormal [Not Recovered/Not Resolved]
  - Hypotension [Unknown]
  - Overdose [Unknown]

NARRATIVE: CASE EVENT DATE: 20210802
